FAERS Safety Report 5932685-2 (Version None)
Quarter: 2008Q4

REPORT INFORMATION
  Report Type: 
  Country: None (occurrence: None)
  Receive Date: 20081009
  Receipt Date: 20071116
  Transmission Date: 20090506
  Serious: Yes (Other)
  Sender: FDA-Public Use
  Company Number: PHEH2007US15015

PATIENT
  Age: 87 Year
  Sex: Female

DRUGS (2)
  1. ZOMETA [Suspect]
  2. REVLIMID [Suspect]
     Indication: MULTIPLE MYELOMA
     Dosage: 10 MG, 1 IN 1 DAY
     Dates: start: 20061020, end: 20061020

REACTIONS (2)
  - BLOOD CREATININE INCREASED [None]
  - RASH [None]
